FAERS Safety Report 21129187 (Version 1)
Quarter: 2022Q3

REPORT INFORMATION
  Report Type: Other
  Country: JP (occurrence: JP)
  Receive Date: 20220725
  Receipt Date: 20220725
  Transmission Date: 20221026
  Serious: Yes (Death, Hospitalization)
  Sender: FDA-Public Use
  Company Number: JP-Genus_Lifesciences-USA-POI0580202200170

PATIENT
  Age: 73 Year
  Sex: Female

DRUGS (1)
  1. YOSPRALA [Suspect]
     Active Substance: ASPIRIN\OMEPRAZOLE
     Indication: Essential thrombocythaemia
     Route: 048
     Dates: start: 2013, end: 202008

REACTIONS (1)
  - Oesophageal intramural haematoma [Fatal]

NARRATIVE: CASE EVENT DATE: 20200801
